FAERS Safety Report 4616438-3 (Version None)
Quarter: 2005Q1

REPORT INFORMATION
  Report Type: 
  Country: None (occurrence: None)
  Receive Date: 20050318
  Receipt Date: 20050307
  Transmission Date: 20050727
  Serious: Yes (Other)
  Sender: FDA-Public Use
  Company Number: 400370412

PATIENT
  Sex: Male

DRUGS (1)
  1. PAREMYD [Suspect]
     Indication: MYDRIASIS
     Dates: start: 20041215

REACTIONS (1)
  - DRUG INEFFECTIVE [None]
